FAERS Safety Report 17453454 (Version 2)
Quarter: 2020Q1

REPORT INFORMATION
  Report Type: Spontaneous
  Country: US (occurrence: US)
  Receive Date: 20200224
  Receipt Date: 20200228
  Transmission Date: 20200409
  Serious: No
  Sender: FDA-Public Use
  Company Number: US-TRIS PHARMA, INC.-20US008826

PATIENT

DRUGS (1)
  1. DEXTROMETHORPHAN POLISTIREX [Suspect]
     Active Substance: DEXTROMETHORPHAN HYDROBROMIDE
     Indication: COUGH
     Dosage: 60 MILLIGRAM, SINGLE
     Route: 048
     Dates: start: 20200210, end: 20200210

REACTIONS (3)
  - Nausea [Recovered/Resolved]
  - Vomiting [Recovered/Resolved]
  - Retching [Recovered/Resolved]

NARRATIVE: CASE EVENT DATE: 20200210
